FAERS Safety Report 9175462 (Version 1)
Quarter: 2013Q1

REPORT INFORMATION
  Report Type: Spontaneous
  Country: FR (occurrence: FR)
  Receive Date: 20130320
  Receipt Date: 20130320
  Transmission Date: 20140127
  Serious: Yes (Hospitalization)
  Sender: FDA-Public Use
  Company Number: FR-ROCHE-1203837

PATIENT
  Age: 81 Year
  Sex: Male

DRUGS (9)
  1. ROCEPHINE [Suspect]
     Indication: PRODUCT USED FOR UNKNOWN INDICATION
     Route: 058
     Dates: start: 20121113, end: 20121123
  2. OFLOCET [Suspect]
     Indication: PRODUCT USED FOR UNKNOWN INDICATION
     Route: 048
     Dates: start: 20121113, end: 20121123
  3. RIFAMPICINE [Suspect]
     Indication: PRODUCT USED FOR UNKNOWN INDICATION
     Route: 048
     Dates: start: 20121113, end: 20121118
  4. FUCIDINE [Suspect]
     Indication: PRODUCT USED FOR UNKNOWN INDICATION
     Route: 048
     Dates: start: 20121118, end: 20121121
  5. LIPANTHYL [Concomitant]
     Route: 048
  6. EUCREAS [Concomitant]
     Route: 048
  7. COTAREG [Concomitant]
     Route: 048
  8. LERCAN [Concomitant]
     Route: 048
  9. LOVENOX [Concomitant]
     Route: 058

REACTIONS (1)
  - Drug reaction with eosinophilia and systemic symptoms [Recovered/Resolved]
